FAERS Safety Report 14025629 (Version 1)
Quarter: 2017Q3

REPORT INFORMATION
  Report Type: Spontaneous
  Country: US (occurrence: US)
  Receive Date: 20170929
  Receipt Date: 20170929
  Transmission Date: 20171128
  Serious: No
  Sender: FDA-Public Use
  Company Number: US-BION-006516

PATIENT
  Sex: Female

DRUGS (1)
  1. IMODIUM A-D [Suspect]
     Active Substance: LOPERAMIDE HYDROCHLORIDE
     Indication: DIARRHOEA
     Dosage: DOSE: STARTED WITH 1 GEL AND TOOK A SECOND ABOUT 1-2 HRS LATER IF NEEDED. SOMETIMES NEEDED 3RD DOSE
     Route: 048

REACTIONS (3)
  - Product use in unapproved indication [Not Recovered/Not Resolved]
  - Unevaluable event [Unknown]
  - Incorrect dosage administered [Not Recovered/Not Resolved]
